FAERS Safety Report 8179474-9 (Version None)
Quarter: 2012Q1

REPORT INFORMATION
  Report Type: 
  Country: None (occurrence: None)
  Receive Date: 20120302
  Receipt Date: 20120222
  Transmission Date: 20120608
  Serious: Yes (Other)
  Sender: FDA-Public Use
  Company Number: US-JNJFOC-20120211216

PATIENT
  Sex: Male
  Weight: 136.08 kg

DRUGS (3)
  1. ANTI FUNGAL [Suspect]
     Indication: FUNGAL INFECTION
     Route: 061
  2. DURAGESIC-100 [Suspect]
     Route: 062
     Dates: start: 20120101
  3. DURAGESIC-100 [Suspect]
     Indication: PAIN
     Route: 062
     Dates: start: 20060101

REACTIONS (6)
  - BURNS THIRD DEGREE [None]
  - PRODUCT QUALITY ISSUE [None]
  - FUNGAL INFECTION [None]
  - DEPRESSION [None]
  - SKIN INFECTION [None]
  - WRONG TECHNIQUE IN DRUG USAGE PROCESS [None]
